FAERS Safety Report 4381247-X (Version None)
Quarter: 2004Q2

REPORT INFORMATION
  Report Type: 
  Country: None (occurrence: None)
  Receive Date: 20040621
  Receipt Date: 20040212
  Transmission Date: 20050107
  Serious: Yes (Hospitalization)
  Sender: FDA-Public Use
  Company Number: FR-BRISTOL-MYERS SQUIBB COMPANY-12530358

PATIENT
  Age: 58 Year
  Sex: Female
  Weight: 56 kg

DRUGS (4)
  1. TAXOL [Suspect]
     Indication: OVARIAN CANCER METASTATIC
     Dosage: 1ST DOSE : 17DEC03@175 MG/M^2
     Route: 042
     Dates: start: 20040107, end: 20040107
  2. CARBOPLATIN [Suspect]
     Indication: OVARIAN CANCER METASTATIC
     Dosage: AUC 5
     Dates: start: 20040107, end: 20040107
  3. MOPRAL [Suspect]
     Indication: PROPHYLAXIS AGAINST GASTROINTESTINAL ULCER
     Route: 042
     Dates: start: 20031201, end: 20040201
  4. SANDOSTATIN [Concomitant]
     Dates: start: 20040122, end: 20040209

REACTIONS (2)
  - DERMATITIS BULLOUS [None]
  - PARANEOPLASTIC SYNDROME [None]
